FAERS Safety Report 15929003 (Version 1)
Quarter: 2019Q1

REPORT INFORMATION
  Report Type: Spontaneous
  Country: US (occurrence: US)
  Receive Date: 20190206
  Receipt Date: 20190206
  Transmission Date: 20190417
  Serious: Yes (Other)
  Sender: FDA-Public Use
  Company Number: US-LEXICON PHARMACEUTICALS, INC-19-1606-00140

PATIENT
  Age: 51 Year
  Sex: Female

DRUGS (4)
  1. SOMATULINE [Concomitant]
     Active Substance: LANREOTIDE ACETATE
  2. PERCOCET [Concomitant]
     Active Substance: ACETAMINOPHEN\OXYCODONE HYDROCHLORIDE
     Route: 048
  3. TELOTRISTAT ETHYL [Suspect]
     Active Substance: TELOTRISTAT ETHYL
     Indication: CARCINOID TUMOUR OF THE DUODENUM
     Route: 048
     Dates: start: 20181109, end: 2018
  4. TELOTRISTAT ETHYL [Suspect]
     Active Substance: TELOTRISTAT ETHYL
     Route: 048
     Dates: start: 201812

REACTIONS (2)
  - Viral infection [Recovered/Resolved]
  - Foot operation [Recovering/Resolving]

NARRATIVE: CASE EVENT DATE: 20190125
